FAERS Safety Report 8956943 (Version 1)
Quarter: 2012Q4

REPORT INFORMATION
  Report Type: Spontaneous
  Country: US (occurrence: None)
  Receive Date: 20121205
  Receipt Date: 20121205
  Transmission Date: 20130627
  Serious: Yes (Other)
  Sender: FDA-Public Use
  Company Number: None

PATIENT
  Age: 49 Year
  Sex: Male
  Weight: 88.45 kg

DRUGS (1)
  1. CRESTOR [Suspect]
     Indication: HIGH CHOLESTEROL
     Route: 048
     Dates: start: 20110914, end: 20120808

REACTIONS (7)
  - High density lipoprotein decreased [None]
  - Blood triglycerides increased [None]
  - Weight increased [None]
  - Muscle fatigue [None]
  - Arthralgia [None]
  - Lethargy [None]
  - Apathy [None]
